FAERS Safety Report 6877423-4 (Version None)
Quarter: 2010Q3

REPORT INFORMATION
  Report Type: 
  Country: None (occurrence: None)
  Receive Date: 20100727
  Receipt Date: 20100202
  Transmission Date: 20110219
  Serious: No
  Sender: FDA-Public Use
  Company Number: US-ABBOTT-10P-163-0623984-00

PATIENT
  Sex: Female
  Weight: 40.406 kg

DRUGS (6)
  1. SYNTHROID [Suspect]
     Indication: HYPOTHYROIDISM
     Dosage: 75MCG MWF, 50-TTHSAT SUN  77109A8 25MCG
     Route: 048
  2. VICODIN [Concomitant]
     Indication: PAIN
     Route: 048
  3. RANITIDINE [Concomitant]
     Indication: PROPHYLAXIS
     Route: 048
  4. RANITIDINE [Concomitant]
     Indication: ANTIINFLAMMATORY THERAPY
  5. VITAMIN D3 [Concomitant]
     Indication: VITAMIN SUPPLEMENTATION
     Route: 048
  6. LOVAZA [Concomitant]
     Indication: MEDICAL DIET
     Route: 048

REACTIONS (2)
  - PAIN IN EXTREMITY [None]
  - RHEUMATOID ARTHRITIS [None]
